FAERS Safety Report 4560550-4 (Version None)
Quarter: 2005Q1

REPORT INFORMATION
  Report Type: 
  Country: None (occurrence: None)
  Receive Date: 20050125
  Receipt Date: 20050120
  Transmission Date: 20050727
  Serious: Yes (Other)
  Sender: FDA-Public Use
  Company Number: GB-GLAXOSMITHKLINE-B0365184A

PATIENT
  Age: 37 Year
  Weight: 54 kg

DRUGS (3)
  1. ZYBAN [Suspect]
     Indication: SMOKING CESSATION THERAPY
     Dosage: 150MG PER DAY
     Route: 048
     Dates: start: 20050107, end: 20050108
  2. GLUCOSAMINE [Concomitant]
     Route: 065
  3. CO Q10 ENZYME [Concomitant]
     Route: 048

REACTIONS (3)
  - DYSPNOEA [None]
  - MIGRAINE [None]
  - OROPHARYNGEAL SWELLING [None]
